FAERS Safety Report 6325448-X (Version None)
Quarter: 2009Q3

REPORT INFORMATION
  Report Type: 
  Country: None (occurrence: None)
  Receive Date: 20090824
  Receipt Date: 20090709
  Transmission Date: 20100115
  Serious: No
  Sender: FDA-Public Use
  Company Number: US-ABBOTT-09P-163-0584459-00

PATIENT
  Sex: Male

DRUGS (8)
  1. NIASPAN [Suspect]
     Indication: BLOOD CHOLESTEROL INCREASED
     Dosage: 500MG AT NIGHT
     Dates: start: 20090401, end: 20090601
  2. NIASPAN [Suspect]
     Dosage: CUTS A 500MG TABLET IN HALF
     Dates: start: 20090601
  3. NATALOL [Concomitant]
     Indication: ESSENTIAL TREMOR
     Dosage: 30 MINUTES BEFORE THE NIASPAN AT NIGHT
  4. FISH OIL [Concomitant]
     Indication: MEDICAL DIET
     Dosage: DAILY IN AM
     Route: 048
  5. MSN [Concomitant]
     Indication: ARTHROPATHY
  6. NEXIUM [Concomitant]
     Indication: GASTROOESOPHAGEAL REFLUX DISEASE
     Dosage: IN AM DAILY
     Route: 048
  7. ASPIRIN [Concomitant]
     Indication: MYOCARDIAL INFARCTION
  8. ASPIRIN [Concomitant]
     Indication: PROPHYLAXIS

REACTIONS (4)
  - BALANCE DISORDER [None]
  - FLUSHING [None]
  - NERVOUSNESS [None]
  - WRONG TECHNIQUE IN DRUG USAGE PROCESS [None]
